FAERS Safety Report 14225558 (Version 1)
Quarter: 2017Q4

REPORT INFORMATION
  Report Type: Spontaneous
  Country: US (occurrence: US)
  Receive Date: 20171126
  Receipt Date: 20171126
  Transmission Date: 20180321
  Serious: Yes (Life-Threatening, Hospitalization, Disabling, Other)
  Sender: FDA-Public Use
  Company Number: None

PATIENT
  Age: 65 Year
  Sex: Female
  Weight: 69.75 kg

DRUGS (5)
  1. NEURONTIN [Suspect]
     Active Substance: GABAPENTIN
     Indication: NECK PAIN
     Dosage: ?          QUANTITY:320 TABLET(S);?
     Route: 048
     Dates: start: 20170201, end: 20171011
  2. VITAMIN D3 [Concomitant]
     Active Substance: CHOLECALCIFEROL
  3. OXYCODONE [Concomitant]
     Active Substance: OXYCODONE
  4. NEURONTIN [Suspect]
     Active Substance: GABAPENTIN
     Indication: ROAD TRAFFIC ACCIDENT
     Dosage: ?          QUANTITY:320 TABLET(S);?
     Route: 048
     Dates: start: 20170201, end: 20171011
  5. FISH OIL [Concomitant]
     Active Substance: FISH OIL

REACTIONS (6)
  - Disorientation [None]
  - Back pain [None]
  - Pain in extremity [None]
  - Rhabdomyolysis [None]
  - Musculoskeletal pain [None]
  - Confusional state [None]

NARRATIVE: CASE EVENT DATE: 20170924
